FAERS Safety Report 23821173 (Version 5)
Quarter: 2024Q3

REPORT INFORMATION
  Report Type: Report from Study
  Country: US (occurrence: US)
  Receive Date: 20240506
  Receipt Date: 20240926
  Transmission Date: 20241017
  Serious: Yes (Other)
  Sender: ABBVIE
  Company Number: US-ABBVIE-5743226

PATIENT
  Sex: Male

DRUGS (8)
  1. SKYRIZI [Suspect]
     Active Substance: RISANKIZUMAB-RZAA
     Indication: Psoriasis
     Dosage: WEEK 0,?FORM STRENGTH: 150MG/ML
     Route: 058
     Dates: start: 20211101, end: 20211101
  2. SKYRIZI [Suspect]
     Active Substance: RISANKIZUMAB-RZAA
     Dosage: WEEK 4,?FORM STRENGTH: 150MG/ML
     Route: 058
     Dates: start: 202201, end: 202201
  3. SKYRIZI [Suspect]
     Active Substance: RISANKIZUMAB-RZAA
     Dosage: FORM STRENGTH: 150MG/ML?FIRST ADMIN DATE 2022
     Route: 058
     Dates: end: 20240506
  4. SKYRIZI [Suspect]
     Active Substance: RISANKIZUMAB-RZAA
     Dosage: FORM STRENGTH: 150MG/ML?FIRST ADMIN DATE: MAY 2024
     Route: 058
     Dates: end: 20240523
  5. TAMSULOSIN [Concomitant]
     Active Substance: TAMSULOSIN
     Indication: Product used for unknown indication
  6. ATORVASTATIN [Concomitant]
     Active Substance: ATORVASTATIN
     Indication: Product used for unknown indication
  7. CLOPIDOGREL [Concomitant]
     Active Substance: CLOPIDOGREL BISULFATE
     Indication: Product used for unknown indication
  8. METOPROLOL [Concomitant]
     Active Substance: METOPROLOL
     Indication: Product used for unknown indication

REACTIONS (3)
  - Lung carcinoma cell type unspecified stage IV [Recovering/Resolving]
  - Psoriasis [Unknown]
  - Squamous cell carcinoma [Unknown]

NARRATIVE: CASE EVENT DATE: 20240101
